FAERS Safety Report 7558305-1 (Version None)
Quarter: 2011Q2

REPORT INFORMATION
  Report Type: 
  Country: None (occurrence: None)
  Receive Date: 20110620
  Receipt Date: 20110610
  Transmission Date: 20111010
  Serious: Yes (Hospitalization)
  Sender: FDA-Public Use
  Company Number: AU-UCBSA-035088

PATIENT
  Sex: Male
  Weight: 74.1 kg

DRUGS (11)
  1. LAMOTRIGINE [Concomitant]
     Dates: start: 20110406, end: 20110411
  2. TRILEPTAL [Concomitant]
     Indication: EPILEPSY
     Dates: start: 20080830, end: 20101021
  3. TRILEPTAL [Concomitant]
     Dates: start: 20101108
  4. LAMOTRIGINE [Concomitant]
     Dates: start: 20110222, end: 20110228
  5. LAMOTRIGINE [Concomitant]
     Dosage: 25 MG + 50 MG DAILY
     Dates: start: 20110228, end: 20110307
  6. TRILEPTAL [Concomitant]
     Dates: start: 20101104, end: 20101107
  7. LAMOTRIGINE [Concomitant]
     Indication: EPILEPSY
     Dates: start: 20110215, end: 20110221
  8. LACOSAMIDE [Suspect]
     Indication: EPILEPSY
     Route: 048
     Dates: start: 20110419
  9. TRILEPTAL [Concomitant]
     Dates: start: 20101022, end: 20101103
  10. LAMOTRIGINE [Concomitant]
     Dosage: 50 MG + 100 MG DAILY
     Dates: start: 20110412
  11. LAMOTRIGINE [Concomitant]
     Dates: start: 20110308, end: 20110405

REACTIONS (1)
  - CONVULSION [None]
